FAERS Safety Report 7248357-0 (Version None)
Quarter: 2011Q1

REPORT INFORMATION
  Report Type: 
  Country: None (occurrence: None)
  Receive Date: 20110127
  Receipt Date: 20110119
  Transmission Date: 20110831
  Serious: Yes (Hospitalization, Other)
  Sender: FDA-Public Use
  Company Number: FR-BAXTER-2010BH030052

PATIENT
  Age: 71 Year
  Sex: Female
  Weight: 57 kg

DRUGS (12)
  1. CEFTAZIDIME [Suspect]
     Indication: PANCYTOPENIA
     Route: 042
     Dates: start: 20101105, end: 20101109
  2. CIFLOX [Concomitant]
     Indication: FEBRILE BONE MARROW APLASIA
     Route: 048
     Dates: start: 20101025, end: 20100101
  3. CIFLOX [Concomitant]
     Route: 048
     Dates: start: 20101110, end: 20100101
  4. NEULASTA [Concomitant]
     Indication: COLONY STIMULATING FACTOR THERAPY
     Route: 058
     Dates: start: 20101113, end: 20101113
  5. AUGMENTIN '125' [Suspect]
     Indication: FEBRILE NEUTROPENIA
     Route: 048
     Dates: start: 20101120, end: 20101122
  6. CIFLOX [Concomitant]
     Indication: FEBRILE NEUTROPENIA
     Route: 048
     Dates: start: 20101120, end: 20101126
  7. MESNA [Concomitant]
     Indication: PRODUCT USED FOR UNKNOWN INDICATION
     Route: 065
     Dates: start: 20101112, end: 20101112
  8. LENOGRASTIM [Concomitant]
     Indication: COLONY STIMULATING FACTOR THERAPY
     Route: 065
     Dates: start: 20101106, end: 20101109
  9. CYCLOPHOSPHAMIDE [Suspect]
     Indication: BREAST CANCER
     Route: 042
     Dates: start: 20101015, end: 20101112
  10. AMIKACIN [Concomitant]
     Indication: PANCYTOPENIA
     Route: 042
     Dates: start: 20101105, end: 20101109
  11. VANCOMYCIN [Suspect]
     Indication: PANCYTOPENIA
     Route: 065
     Dates: start: 20101105, end: 20101109
  12. EPIRUBICIN HYDROCHLORIDE [Suspect]
     Indication: BREAST CANCER
     Route: 042
     Dates: start: 20101015, end: 20101112

REACTIONS (7)
  - RASH PAPULAR [None]
  - ALOPECIA [None]
  - FEBRILE BONE MARROW APLASIA [None]
  - FEBRILE NEUTROPENIA [None]
  - MUCOSAL INFLAMMATION [None]
  - PANCYTOPENIA [None]
  - CONJUNCTIVITIS [None]
